FAERS Safety Report 18631472 (Version 2)
Quarter: 2020Q4

REPORT INFORMATION
  Report Type: Spontaneous
  Country: CZ (occurrence: CZ)
  Receive Date: 20201218
  Receipt Date: 20201230
  Transmission Date: 20210114
  Serious: Yes (Hospitalization, Other)
  Sender: FDA-Public Use
  Company Number: CZ-AUROBINDO-AUR-APL-2020-061448

PATIENT
  Age: 96 Year
  Sex: Female

DRUGS (26)
  1. GUTTALAX [BISACODYL] [Suspect]
     Active Substance: BISACODYL
     Indication: CONSTIPATION
     Dosage: UNK, 10-20 GUTTES
     Route: 065
  2. ORAMELLOX [Suspect]
     Active Substance: MELOXICAM
     Indication: POST HERPETIC NEURALGIA
     Dosage: 1 DOSAGE FORM, ONCE A DAY
     Route: 065
     Dates: start: 2015
  3. CORDARONE [Suspect]
     Active Substance: AMIODARONE HYDROCHLORIDE
     Indication: PRODUCT USED FOR UNKNOWN INDICATION
     Dosage: 200 MILLIGRAM, ONCE A DAY
     Route: 065
  4. BETALOC [Suspect]
     Active Substance: METOPROLOL
     Indication: PRODUCT USED FOR UNKNOWN INDICATION
     Dosage: 25 MILLIGRAM, ONCE A DAY
     Route: 065
  5. TRAMADOL. [Suspect]
     Active Substance: TRAMADOL
     Indication: PRODUCT USED FOR UNKNOWN INDICATION
     Dosage: UNK OVERUSED
     Route: 048
  6. CONDROSULF [Suspect]
     Active Substance: SODIUM CHONDROITIN SULFATE
     Indication: PRODUCT USED FOR UNKNOWN INDICATION
     Dosage: 800 MILLIGRAM, ONCE A DAY
     Route: 065
  7. ROSUCARD [Suspect]
     Active Substance: ROSUVASTATIN CALCIUM
     Indication: PRODUCT USED FOR UNKNOWN INDICATION
     Dosage: 20 MILLIGRAM, ONCE A DAY
     Route: 065
  8. NOVALGIN (CAFFEINE/PARACETAMOL/PROPYPHENAZONE) [Suspect]
     Active Substance: ACETAMINOPHEN\CAFFEINE\PROPYPHENAZONE
     Indication: PRODUCT USED FOR UNKNOWN INDICATION
     Dosage: 500 MILLIGRAM, TWO TIMES A DAY
     Route: 065
  9. DUROGESIC [Suspect]
     Active Substance: FENTANYL
     Indication: POST HERPETIC NEURALGIA
     Dosage: 25 MICROGRAM EVERY 72 HRS
     Route: 065
     Dates: start: 2015
  10. EUTHYROX [Suspect]
     Active Substance: LEVOTHYROXINE SODIUM
     Indication: AUTOIMMUNE THYROIDITIS
     Dosage: 100 MICROGRAM, ONCE A DAY
     Route: 065
  11. METHOTREXATE. [Suspect]
     Active Substance: METHOTREXATE
     Indication: RHEUMATOID ARTHRITIS
     Dosage: 10 MILLIGRAM, EVERY WEEK
     Route: 065
     Dates: start: 2010
  12. CALCICHEW D3 [Suspect]
     Active Substance: CALCIUM\CHOLECALCIFEROL
     Indication: PRODUCT USED FOR UNKNOWN INDICATION
     Dosage: UNK
     Route: 065
  13. ACIDUM FOLICUM [Suspect]
     Active Substance: FOLIC ACID
     Indication: PRODUCT USED FOR UNKNOWN INDICATION
     Dosage: UNK
     Route: 065
  14. HYPNOGEN [Suspect]
     Active Substance: ZOLPIDEM TARTRATE
     Indication: PRODUCT USED FOR UNKNOWN INDICATION
     Dosage: OVERUSED
     Route: 065
  15. PREDNISONE. [Suspect]
     Active Substance: PREDNISONE
     Indication: PRODUCT USED FOR UNKNOWN INDICATION
     Dosage: UNK
     Route: 065
  16. IBALGIN [Suspect]
     Active Substance: IBUPROFEN
     Indication: PAIN
     Dosage: UNK
     Route: 065
  17. STILNOX [Suspect]
     Active Substance: ZOLPIDEM TARTRATE
     Indication: PRODUCT USED FOR UNKNOWN INDICATION
     Dosage: OVERUSED
     Route: 065
  18. CONTROLOC [Suspect]
     Active Substance: PANTOPRAZOLE SODIUM
     Indication: PRODUCT USED FOR UNKNOWN INDICATION
     Dosage: 20 MILLIGRAM, ONCE A DAY
     Route: 065
  19. PANADOL [Suspect]
     Active Substance: ACETAMINOPHEN
     Indication: PAIN
     Dosage: 1.5 DOSAGE FORM 3-4 TIMES A DAY
     Route: 065
  20. CARDILAN [MAGNESIUM ASPARTATE/POTASSIUM ASPARTATE] [Suspect]
     Active Substance: MAGNESIUM ASPARTATE\POTASSIUM ASPARTATE
     Indication: PRODUCT USED FOR UNKNOWN INDICATION
     Dosage: UNK
     Route: 065
  21. BETALOC ZOK [Suspect]
     Active Substance: METOPROLOL SUCCINATE
     Indication: PRODUCT USED FOR UNKNOWN INDICATION
     Dosage: 25 MILLIGRAM, ONCE A DAY
     Route: 065
  22. OXAZEPAM. [Suspect]
     Active Substance: OXAZEPAM
     Indication: PRODUCT USED FOR UNKNOWN INDICATION
     Dosage: OVERUSED
     Route: 048
  23. AGEN [Suspect]
     Active Substance: AMLODIPINE BESYLATE
     Indication: PRODUCT USED FOR UNKNOWN INDICATION
     Dosage: 5 MILLIGRAM, ONCE A DAY
     Route: 065
  24. TEZEO [Suspect]
     Active Substance: TELMISARTAN
     Indication: PRODUCT USED FOR UNKNOWN INDICATION
     Dosage: 80/12.5 MG
     Route: 065
  25. METAMIZOLE [Suspect]
     Active Substance: METAMIZOLE
     Indication: POST HERPETIC NEURALGIA
     Dosage: UNK
     Route: 065
  26. ELIQUIS [Suspect]
     Active Substance: APIXABAN
     Indication: PRODUCT USED FOR UNKNOWN INDICATION
     Dosage: 5 MILLIGRAM, ONCE A DAY
     Route: 065

REACTIONS (33)
  - Urinary retention [Recovering/Resolving]
  - Atrial fibrillation [Recovering/Resolving]
  - Intentional product misuse [Unknown]
  - Concomitant disease aggravated [Recovering/Resolving]
  - Medication error [Recovered/Resolved]
  - Pelvic fracture [Recovered/Resolved]
  - Hypokalaemia [Recovering/Resolving]
  - Hypertension [Recovering/Resolving]
  - Fracture [Recovered/Resolved]
  - Vertigo [Recovering/Resolving]
  - Overdose [Recovered/Resolved]
  - Head discomfort [Recovering/Resolving]
  - Condition aggravated [Recovered/Resolved]
  - Fall [Recovered/Resolved]
  - Hypoacusis [Recovered/Resolved]
  - Apathy [Recovering/Resolving]
  - Liver function test increased [Recovering/Resolving]
  - Product use issue [Recovered/Resolved]
  - Dizziness [Recovered/Resolved]
  - Contusion [Recovered/Resolved]
  - Confusional state [Recovering/Resolving]
  - Nausea [Recovering/Resolving]
  - Foreign body [Recovered/Resolved]
  - Delirium [Recovering/Resolving]
  - Cognitive disorder [Recovered/Resolved]
  - Anxiety [Recovered/Resolved]
  - Restlessness [Recovered/Resolved]
  - Hyponatraemia [Recovering/Resolving]
  - Listless [Recovering/Resolving]
  - Drug abuse [Unknown]
  - Poor quality sleep [Recovered/Resolved]
  - Oxygen saturation decreased [Recovering/Resolving]
  - Prescription drug used without a prescription [Unknown]
